FAERS Safety Report 4746777-7 (Version None)
Quarter: 2005Q3

REPORT INFORMATION
  Report Type: 
  Country: None (occurrence: None)
  Receive Date: 20050815
  Receipt Date: 20050803
  Transmission Date: 20060218
  Serious: Yes (Other)
  Sender: FDA-Public Use
  Company Number: 2005103614

PATIENT
  Age: 62 Year
  Sex: Male
  Weight: 86 kg

DRUGS (3)
  1. CAMPTOSAR [Suspect]
     Indication: COLON CANCER
     Dosage: 80 MG/M*2 (80 MG/M*2, ONCE WEEKLY), INTRAVENOUS
     Route: 042
     Dates: start: 20050331
  2. CETUXIMAB (CETUXIMAB) [Concomitant]
  3. GRANISETRON (GRANISETRON) [Concomitant]

REACTIONS (2)
  - CONDITION AGGRAVATED [None]
  - POLYNEUROPATHY [None]
